FAERS Safety Report 8928557 (Version 2)
Quarter: 2014Q1

REPORT INFORMATION
  Report Type: Spontaneous
  Country: US (occurrence: US)
  Receive Date: 20121128
  Receipt Date: 20140213
  Transmission Date: 20141002
  Serious: No
  Sender: FDA-Public Use
  Company Number: US-BIOGENIDEC-2012BI055498

PATIENT
  Sex: Female

DRUGS (1)
  1. TYSABRI [Suspect]
     Indication: MULTIPLE SCLEROSIS
     Route: 042
     Dates: start: 20120530

REACTIONS (13)
  - Memory impairment [Not Recovered/Not Resolved]
  - Learning disorder [Not Recovered/Not Resolved]
  - Blindness transient [Recovered/Resolved]
  - Diplopia [Recovered/Resolved]
  - Affective disorder [Recovered/Resolved]
  - Depression [Recovered/Resolved]
  - Hypersomnia [Recovered/Resolved]
  - Stress [Recovered/Resolved]
  - Optic neuritis [Recovered/Resolved]
  - Abasia [Recovered/Resolved]
  - Aphasia [Recovered/Resolved]
  - Uhthoff^s phenomenon [Recovered/Resolved]
  - Urticaria [Recovered/Resolved]
